FAERS Safety Report 21997805 (Version 1)
Quarter: 2023Q1

REPORT INFORMATION
  Report Type: Spontaneous
  Country: US (occurrence: US)
  Receive Date: 20230216
  Receipt Date: 20230216
  Transmission Date: 20230418
  Serious: Yes (Death, Hospitalization, Other)
  Sender: FDA-Public Use
  Company Number: US-BRISTOL-MYERS SQUIBB COMPANY-2023-021952

PATIENT
  Age: 59 Year
  Sex: Male

DRUGS (6)
  1. OPDIVO [Suspect]
     Active Substance: NIVOLUMAB
     Indication: Lung neoplasm malignant
     Dosage: 3.5 HOURS
     Dates: start: 20210209
  2. OPDIVO [Suspect]
     Active Substance: NIVOLUMAB
     Dosage: 1-2 HOUR
     Dates: start: 20210223
  3. OPDIVO [Suspect]
     Active Substance: NIVOLUMAB
     Dosage: 1-2 HOUR
     Dates: start: 20210309
  4. YERVOY [Suspect]
     Active Substance: IPILIMUMAB
     Indication: Lung neoplasm malignant
     Dosage: 3.5 HOURS
     Dates: start: 20210209
  5. YERVOY [Suspect]
     Active Substance: IPILIMUMAB
     Dosage: 1-2 HOUR
     Dates: start: 20210223
  6. YERVOY [Suspect]
     Active Substance: IPILIMUMAB
     Dosage: 1-2 HOUR
     Dates: start: 20210309

REACTIONS (4)
  - Mobility decreased [Unknown]
  - Death [Fatal]
  - White blood cell disorder [Unknown]
  - Off label use [Unknown]

NARRATIVE: CASE EVENT DATE: 20210301
